FAERS Safety Report 15572857 (Version 1)
Quarter: 2018Q4

REPORT INFORMATION
  Report Type: Spontaneous
  Country: ES (occurrence: ES)
  Receive Date: 20181031
  Receipt Date: 20181031
  Transmission Date: 20190205
  Serious: Yes (Life-Threatening, Other)
  Sender: FDA-Public Use
  Company Number: ES-PRINSTON PHARMACEUTICAL INC.-2018PRN01540

PATIENT
  Age: 45 Year
  Sex: Male

DRUGS (1)
  1. CAPTOPRIL. [Suspect]
     Active Substance: CAPTOPRIL
     Indication: HYPERTENSION
     Dosage: 25 MG
     Route: 065

REACTIONS (4)
  - Aspiration [Recovered/Resolved]
  - Angioedema [Recovered/Resolved]
  - Respiratory distress [Recovered/Resolved]
  - Endotracheal intubation complication [Recovered/Resolved]
